FAERS Safety Report 16274841 (Version 1)
Quarter: 2019Q2

REPORT INFORMATION
  Report Type: Spontaneous
  Country: PH (occurrence: PH)
  Receive Date: 20190504
  Receipt Date: 20190504
  Transmission Date: 20190711
  Serious: Yes (Death, Hospitalization)
  Sender: FDA-Public Use
  Company Number: PHHY2019PH102007

PATIENT
  Age: 19 Year
  Sex: Female

DRUGS (1)
  1. METHYLPREDNISOLONE. [Suspect]
     Active Substance: METHYLPREDNISOLONE
     Indication: LUPUS NEPHRITIS
     Dosage: UNK
     Route: 065

REACTIONS (8)
  - Dyspnoea [Unknown]
  - Condition aggravated [Unknown]
  - Multiple organ dysfunction syndrome [Fatal]
  - Pyrexia [Unknown]
  - Pneumonia [Unknown]
  - Acid fast bacilli infection [Unknown]
  - Cough [Unknown]
  - Disseminated tuberculosis [Unknown]
